FAERS Safety Report 6368145-7 (Version None)
Quarter: 2009Q3

REPORT INFORMATION
  Report Type: 
  Country: None (occurrence: None)
  Receive Date: 20090915
  Receipt Date: 20090915
  Transmission Date: 20100115
  Serious: No
  Sender: FDA-Public Use
  Company Number: None

PATIENT
  Age: 82 Year
  Sex: Male

DRUGS (2)
  1. EZETIMIDE [Suspect]
  2. ZETIA [Suspect]

REACTIONS (15)
  - ADENOCARCINOMA [None]
  - BALANCE DISORDER [None]
  - BILE DUCT OBSTRUCTION [None]
  - CEREBROVASCULAR ACCIDENT [None]
  - CHOLELITHIASIS [None]
  - COMA [None]
  - DEEP VEIN THROMBOSIS [None]
  - DEHYDRATION [None]
  - FALL [None]
  - HEPATIC INFECTION BACTERIAL [None]
  - HIP FRACTURE [None]
  - MUSCULAR WEAKNESS [None]
  - RENAL CYST [None]
  - STENT OCCLUSION [None]
  - URINARY TRACT INFECTION [None]
